FAERS Safety Report 8796117 (Version 2)
Quarter: 2012Q4

REPORT INFORMATION
  Report Type: 
  Country: US (occurrence: US)
  Receive Date: 20120919
  Receipt Date: 20121123
  Transmission Date: 20130627
  Serious: Yes (Other)
  Sender: FDA-Public Use
  Company Number: US-BRISTOL-MYERS SQUIBB COMPANY-16945743

PATIENT
  Age: 57 Year
  Sex: Male

DRUGS (1)
  1. ORENCIA [Suspect]
     Indication: RHEUMATOID ARTHRITIS
     Dosage: no of inf:1
Jun-Jun2012
     Route: 042
     Dates: start: 201206, end: 201206

REACTIONS (2)
  - Head and neck cancer [Unknown]
  - Gastric haemorrhage [Unknown]
